FAERS Safety Report 22344607 (Version 1)
Quarter: 2023Q2

REPORT INFORMATION
  Report Type: Spontaneous
  Country: JP (occurrence: JP)
  Receive Date: 20230519
  Receipt Date: 20230519
  Transmission Date: 20230722
  Serious: Yes (Other)
  Sender: FDA-Public Use
  Company Number: JP-TEVA-2023-JP-2886637

PATIENT
  Age: 79 Year
  Sex: Male

DRUGS (6)
  1. ACYCLOVIR [Suspect]
     Active Substance: ACYCLOVIR
     Indication: Plasmacytoma
     Route: 065
  2. ASPIRIN [Suspect]
     Active Substance: ASPIRIN
     Indication: Plasmacytoma
     Route: 065
  3. CARFILZOMIB [Suspect]
     Active Substance: CARFILZOMIB
     Indication: Plasmacytoma
     Dosage: KLD THERAPY; 20 MG/M*2 ON DAYS 1-2, 27MG/M*2 ON DAYS 8-9,15-16
     Route: 065
  4. CARFILZOMIB [Suspect]
     Active Substance: CARFILZOMIB
     Dosage: RECHALLENGED WITH 75% REDUCED DOSE
     Route: 065
  5. LENALIDOMIDE [Suspect]
     Active Substance: LENALIDOMIDE
     Indication: Plasmacytoma
     Dosage: KLD THERAPY; 25 MG/BODY ON DAYS 1-21
     Route: 065
  6. DEXAMETHASONE [Suspect]
     Active Substance: DEXAMETHASONE
     Indication: Plasmacytoma
     Dosage: 40 MILLIGRAM DAILY; KLD THERAPY; 40 MG/DAY ON DAYS 1, 8, 15, 22
     Route: 065

REACTIONS (10)
  - Thrombotic microangiopathy [Recovered/Resolved]
  - Microangiopathic haemolytic anaemia [Recovered/Resolved]
  - Acute kidney injury [Unknown]
  - Urinary occult blood [Recovered/Resolved]
  - Protein urine present [Recovered/Resolved]
  - Renal disorder [Unknown]
  - Anaemia [Recovering/Resolving]
  - Thrombocytopenia [Recovering/Resolving]
  - Blood lactate dehydrogenase increased [Unknown]
  - Blood bilirubin unconjugated increased [Unknown]
